FAERS Safety Report 6052173-5 (Version None)
Quarter: 2009Q1

REPORT INFORMATION
  Report Type: 
  Country: None (occurrence: None)
  Receive Date: 20090121
  Receipt Date: 20080619
  Transmission Date: 20090719
  Serious: Yes (Other)
  Sender: FDA-Public Use
  Company Number: US-WYE-H04637208

PATIENT
  Age: 52 Year
  Sex: Female
  Weight: 84.44 kg

DRUGS (3)
  1. PREMPRO [Suspect]
     Indication: MENOPAUSAL SYMPTOMS
     Dosage: 1 TABLET 1X PER 1 DAY, ORAL
     Route: 048
     Dates: start: 20050404, end: 20080119
  2. ESTRADIOL [Suspect]
     Indication: MENOPAUSE
     Dosage: 1 MG 1X PER 1 DAY, ORAL
     Route: 048
     Dates: start: 20080214, end: 20080612
  3. NORETHINDRONE ACETATE [Suspect]
     Indication: MENOPAUSE
     Dosage: 5 MG X 17 DAYS, ORAL
     Route: 048
     Dates: start: 20080214, end: 20080612

REACTIONS (1)
  - ENDOMETRIAL CANCER [None]
